FAERS Safety Report 5311047-5 (Version None)
Quarter: 2007Q2

REPORT INFORMATION
  Report Type: 
  Country: None (occurrence: None)
  Receive Date: 20070430
  Receipt Date: 20070423
  Transmission Date: 20071010
  Serious: Yes (Hospitalization)
  Sender: FDA-Public Use
  Company Number: US-JNJFOC-20040908995

PATIENT
  Sex: Female
  Weight: 61.24 kg

DRUGS (1)
  1. ORTHO EVRA [Suspect]
     Indication: CONTRACEPTION
     Route: 062
     Dates: start: 20030801, end: 20031028

REACTIONS (4)
  - ALPHA HAEMOLYTIC STREPTOCOCCAL INFECTION [None]
  - PELVIC INFLAMMATORY DISEASE [None]
  - PULMONARY EMBOLISM [None]
  - SEPTIC EMBOLUS [None]
